FAERS Safety Report 7787637-7 (Version None)
Quarter: 2011Q3

REPORT INFORMATION
  Report Type: 
  Country: None (occurrence: None)
  Receive Date: 20110929
  Receipt Date: 20110922
  Transmission Date: 20111222
  Serious: Yes (Death)
  Sender: FDA-Public Use
  Company Number: PR-BAYER-2011-090160

PATIENT

DRUGS (2)
  1. AVELOX [Suspect]
     Indication: PNEUMONIA
  2. PRIMAXIN [Suspect]

REACTIONS (1)
  - CARDIO-RESPIRATORY ARREST [None]
